FAERS Safety Report 7077174-X (Version None)
Quarter: 2010Q4

REPORT INFORMATION
  Report Type: 
  Country: None (occurrence: None)
  Receive Date: 20101101
  Receipt Date: 20101022
  Transmission Date: 20110411
  Serious: Yes (Other)
  Sender: FDA-Public Use
  Company Number: B0679141A

PATIENT
  Sex: Female
  Weight: 66 kg

DRUGS (9)
  1. REQUIP [Suspect]
     Indication: PARKINSONISM
     Route: 048
     Dates: start: 20100303
  2. SINEMET [Concomitant]
     Route: 065
  3. XANAX XR [Concomitant]
  4. TRIAPIN [Concomitant]
  5. CRESTOR [Concomitant]
  6. CIPRALEX [Concomitant]
  7. TRIATEC [Concomitant]
  8. CYCLOBENZAPRIN [Concomitant]
  9. GUTTALAX [Concomitant]

REACTIONS (6)
  - ABDOMINAL PAIN UPPER [None]
  - CONDITION AGGRAVATED [None]
  - DRUG INEFFECTIVE [None]
  - FORMICATION [None]
  - MEDICATION RESIDUE [None]
  - PRODUCT QUALITY ISSUE [None]
